FAERS Safety Report 10070997 (Version 1)
Quarter: 2014Q2

REPORT INFORMATION
  Report Type: Spontaneous
  Country: IT (occurrence: IT)
  Receive Date: 20140410
  Receipt Date: 20140410
  Transmission Date: 20141212
  Serious: Yes (Other)
  Sender: FDA-Public Use
  Company Number: IT-BRISTOL-MYERS SQUIBB COMPANY-20588042

PATIENT
  Age: 85 Year
  Sex: Female

DRUGS (4)
  1. COUMADIN TABS 5 MG [Suspect]
     Indication: ATRIAL FIBRILLATION
     Dosage: DRUG INTERRUPETD ON: 18-MAR-2014
     Route: 048
     Dates: start: 20130101
  2. CITALOPRAM [Concomitant]
     Indication: DEPRESSION
     Dosage: ORAL DROPS SOLUTION
     Route: 048
  3. RAMIPRIL [Concomitant]
     Indication: HYPERTENSION
     Route: 048
  4. SOTALOL [Concomitant]
     Indication: HYPERTENSION
     Route: 048

REACTIONS (2)
  - International normalised ratio increased [Recovered/Resolved]
  - Drug abuse [Unknown]
